FAERS Safety Report 16705545 (Version 3)
Quarter: 2020Q3

REPORT INFORMATION
  Report Type: Spontaneous
  Country: CN (occurrence: CN)
  Receive Date: 20190815
  Receipt Date: 20200730
  Transmission Date: 20201102
  Serious: Yes (Other)
  Sender: FDA-Public Use
  Company Number: CN-ROCHE-2367579

PATIENT
  Age: 68 Year
  Sex: Male

DRUGS (27)
  1. MABTHERA [Suspect]
     Active Substance: RITUXIMAB
     Indication: DIFFUSE LARGE B-CELL LYMPHOMA
     Dosage: PATIENT SUBSEQUENTLY TAKING DOSE ON? 02/APR/2018, 26/APR/2018, 27/MAY/2018, 02/AUG/2018, 01/SEP/2018
     Route: 065
     Dates: start: 20180210, end: 2018
  2. DEXAMETHASONE. [Concomitant]
     Active Substance: DEXAMETHASONE
     Indication: DIFFUSE LARGE B-CELL LYMPHOMA
     Dosage: DAY1?7
     Dates: start: 20190404
  3. DOCETAXEL. [Concomitant]
     Active Substance: DOCETAXEL
     Dosage: 28?AUG 2019, 15 OCT 2019 AND 06 DEC 2019
  4. CYCLOPHOSPHAMIDE. [Concomitant]
     Active Substance: CYCLOPHOSPHAMIDE
     Indication: DIFFUSE LARGE B-CELL LYMPHOMA
     Dosage: PATIENT SUBSEQUENTLY TAKING DOSE ON ? 05/MAR/2018, 02/APR/2018, 26/APR/2018, 27/MAY/2018 AND 02/AUG/
     Dates: start: 20180210, end: 2018
  5. PREDNISONE ACETATE [Concomitant]
     Active Substance: PREDNISONE ACETATE
     Indication: DIFFUSE LARGE B-CELL LYMPHOMA
     Dosage: PATIENT SUBSEQUENTLY TAKING DOSE ON ? 05/MAR/2018, 02/APR/2018, 26/APR/2018, 27/MAY/2018 AND 02/AUG/
     Dates: start: 20180210, end: 2018
  6. METHOTREXATE. [Concomitant]
     Active Substance: METHOTREXATE
     Indication: DIFFUSE LARGE B-CELL LYMPHOMA
     Dates: start: 20190404
  7. VINORELBINE [Concomitant]
     Active Substance: VINORELBINE TARTRATE
     Indication: DIFFUSE LARGE B-CELL LYMPHOMA
     Dosage: DAY1
     Dates: start: 20190404
  8. IBRUTINIB [Concomitant]
     Active Substance: IBRUTINIB
     Dosage: 28?AUG 2019, 15 OCT 2019 AND 06 DEC 2019
  9. IBRUTINIB [Concomitant]
     Active Substance: IBRUTINIB
     Dates: start: 20200111
  10. IBRUTINIB [Concomitant]
     Active Substance: IBRUTINIB
     Indication: DIFFUSE LARGE B-CELL LYMPHOMA
     Dates: start: 20190510
  11. MABTHERA [Suspect]
     Active Substance: RITUXIMAB
     Dosage: PATIENT SUBSEQUENTLY TAKING SAME DOSE ON? 04/JUL/2019, 28/AUG/2019, 15/OCT/2019, 06/DEC/2019, 11/JAN
     Route: 065
     Dates: start: 20190530
  12. DEXAMETHASONE. [Concomitant]
     Active Substance: DEXAMETHASONE
     Dates: start: 20200111
  13. IBRUTINIB [Concomitant]
     Active Substance: IBRUTINIB
     Dates: start: 202003
  14. EPIRUBICIN [Concomitant]
     Active Substance: EPIRUBICIN
     Indication: DIFFUSE LARGE B-CELL LYMPHOMA
     Dosage: PATIENT SUBSEQUENTLY TAKING DOSE ON ? 05/MAR/2018, 02/APR/2018, 26/APR/2018, 27/MAY/2018 AND 02/AUG/
     Dates: start: 20180210, end: 2018
  15. VINCRISTINE [Concomitant]
     Active Substance: VINCRISTINE
     Dates: start: 20190404
  16. PREDNISONE ACETATE [Concomitant]
     Active Substance: PREDNISONE ACETATE
     Dates: start: 20190404
  17. METHOTREXATE. [Concomitant]
     Active Substance: METHOTREXATE
     Dates: start: 20200111
  18. DOCETAXEL. [Concomitant]
     Active Substance: DOCETAXEL
     Dates: start: 202003
  19. VINCRISTINE [Concomitant]
     Active Substance: VINCRISTINE
     Indication: DIFFUSE LARGE B-CELL LYMPHOMA
     Dosage: PATIENT SUBSEQUENTLY TAKING DOSE ON ? 05/MAR/2018, 02/APR/2018, 26/APR/2018, 27/MAY/2018 AND 02/AUG/
     Dates: start: 20180210, end: 2018
  20. METHOTREXATE. [Concomitant]
     Active Substance: METHOTREXATE
     Dates: start: 20190505, end: 20190527
  21. DEXAMETHASONE. [Concomitant]
     Active Substance: DEXAMETHASONE
     Dates: start: 20190505, end: 20190527
  22. HUMAN IMMUNOGLOBULIN [Concomitant]
     Indication: DIFFUSE LARGE B-CELL LYMPHOMA
     Dosage: 30/MAY/2019 AND 04/JUL/2019
  23. IBRUTINIB [Concomitant]
     Active Substance: IBRUTINIB
     Dates: start: 20190530
  24. IBRUTINIB [Concomitant]
     Active Substance: IBRUTINIB
     Dates: start: 20190704
  25. DOCETAXEL. [Concomitant]
     Active Substance: DOCETAXEL
     Indication: DIFFUSE LARGE B-CELL LYMPHOMA
     Dates: start: 20190704
  26. DOCETAXEL. [Concomitant]
     Active Substance: DOCETAXEL
     Dates: start: 20200111
  27. ETOPOSIDE. [Concomitant]
     Active Substance: ETOPOSIDE
     Indication: DIFFUSE LARGE B-CELL LYMPHOMA
     Dates: start: 20200402

REACTIONS (16)
  - Headache [Unknown]
  - Pyrexia [Recovered/Resolved]
  - Diplopia [Unknown]
  - Tinnitus [Unknown]
  - Aphasia [Recovering/Resolving]
  - Anal incontinence [Recovering/Resolving]
  - Urinary incontinence [Recovering/Resolving]
  - Infusion related reaction [Unknown]
  - Weight decreased [Unknown]
  - Hypersensitivity [Unknown]
  - Nausea [Unknown]
  - Unresponsive to stimuli [Recovering/Resolving]
  - Cognitive disorder [Recovering/Resolving]
  - Vomiting [Recovering/Resolving]
  - Coma [Recovering/Resolving]
  - Dizziness [Recovering/Resolving]

NARRATIVE: CASE EVENT DATE: 20180527
